FAERS Safety Report 8473121-4 (Version None)
Quarter: 2012Q2

REPORT INFORMATION
  Report Type: 
  Country: None (occurrence: None)
  Receive Date: 20120627
  Receipt Date: 20031106
  Transmission Date: 20120825
  Serious: Yes (Other)
  Sender: FDA-Public Use
  Company Number: US-ROCHE-GNE203250

PATIENT
  Sex: Male
  Weight: 99.106 kg

DRUGS (7)
  1. ALLEGRA [Concomitant]
     Dosage: 180 MG, QD
  2. THEO-DUR [Concomitant]
     Dosage: 200 MG, BID
  3. XOLAIR [Suspect]
     Indication: ASTHMA
     Dosage: 375 MG, Q2W
     Route: 058
     Dates: start: 20031105, end: 20031119
  4. VENTOLIN [Concomitant]
     Dosage: UNK, PRN
  5. SINGULAIR [Concomitant]
     Dosage: 10 MG, QD
  6. ALBUTEROL [Concomitant]
     Dosage: UNK, PRN
  7. ADVAIR DISKUS 100/50 [Concomitant]
     Dosage: UNK, BID

REACTIONS (4)
  - RASH GENERALISED [None]
  - PRURITUS [None]
  - ERYTHEMA [None]
  - DYSPNOEA [None]
